FAERS Safety Report 24327525 (Version 1)
Quarter: 2024Q3

REPORT INFORMATION
  Report Type: Spontaneous
  Country: US (occurrence: None)
  Receive Date: 20240916
  Receipt Date: 20240916
  Transmission Date: 20241016
  Serious: No
  Sender: Public
  Company Number: None

PATIENT
  Age: 74 Year
  Sex: Female
  Weight: 86.4 kg

DRUGS (7)
  1. TIRZEPATIDE [Suspect]
     Active Substance: TIRZEPATIDE
     Indication: Weight decreased
     Dosage: OTHER QUANTITY : 1 INJECTION(S)?OTHER FREQUENCY : WEEKLY?OTHER ROUTE : INJECTED IN FATTY TISSUE?
     Route: 050
     Dates: start: 20240827, end: 20240827
  2. MELOXICAM [Concomitant]
     Active Substance: MELOXICAM
  3. LISINOPRIL AND HYDROCHLOROTHIAZIDE [Concomitant]
     Active Substance: HYDROCHLOROTHIAZIDE\LISINOPRIL
  4. CARVEDILOL [Concomitant]
     Active Substance: CARVEDILOL
  5. PRAVASTATIN [Concomitant]
     Active Substance: PRAVASTATIN
  6. BIMATOPROST [Concomitant]
     Active Substance: BIMATOPROST
  7. NUTROFOL [Concomitant]

REACTIONS (2)
  - Arthritis [None]
  - Incision site inflammation [None]

NARRATIVE: CASE EVENT DATE: 20240830
